FAERS Safety Report 9380765 (Version 1)
Quarter: 2013Q3

REPORT INFORMATION
  Report Type: Report from Study
  Country: BR (occurrence: BR)
  Receive Date: 20130702
  Receipt Date: 20130702
  Transmission Date: 20140515
  Serious: Yes (Hospitalization)
  Sender: FDA-Public Use
  Company Number: BR-ABBOTT-13P-020-1111054-00

PATIENT
  Age: 62 Year
  Sex: Female
  Weight: 73 kg

DRUGS (13)
  1. HUMIRA [Suspect]
     Indication: RHEUMATOID ARTHRITIS
     Route: 058
     Dates: start: 20120510
  2. UNKNOWN ANTIBIOTIC DRUG [Suspect]
     Indication: PRODUCT USED FOR UNKNOWN INDICATION
  3. AZULFIN [Concomitant]
     Indication: ARTHRITIS
     Route: 048
     Dates: start: 201206
  4. PREDNISOL [Concomitant]
     Indication: ARTHRITIS
     Route: 048
     Dates: start: 2010
  5. BIOFENAC [Concomitant]
     Indication: ARTHRITIS
     Route: 048
     Dates: start: 2010
  6. ENALAPRIL [Concomitant]
     Indication: HYPERTENSION
     Route: 048
     Dates: start: 2003
  7. ATENOLOL [Concomitant]
     Indication: HYPERTENSION
     Route: 048
     Dates: start: 2003
  8. SPIRONOLACTONE [Concomitant]
     Indication: HYPERTENSION
     Route: 048
     Dates: start: 2003
  9. SIMVASTATIN [Concomitant]
     Indication: BLOOD CHOLESTEROL ABNORMAL
     Route: 048
     Dates: start: 2004
  10. ASPIRIN [Concomitant]
     Indication: BLOOD CHOLESTEROL ABNORMAL
     Route: 048
     Dates: start: 2004
  11. SEPROPLAN [Concomitant]
     Indication: SLEEP DISORDER THERAPY
     Route: 048
     Dates: start: 2011
  12. PRAZOL [Concomitant]
     Indication: GASTRIC DISORDER
     Route: 048
     Dates: start: 2012
  13. PARACETAMOL [Concomitant]
     Indication: PAIN
     Dosage: 750MG DAILY IF NEEDED
     Route: 048
     Dates: start: 2011

REACTIONS (3)
  - Gastric disorder [Unknown]
  - Liver disorder [Unknown]
  - Rheumatic disorder [Unknown]
